FAERS Safety Report 5265502-7 (Version None)
Quarter: 2007Q1

REPORT INFORMATION
  Report Type: 
  Country: None (occurrence: None)
  Receive Date: 20070314
  Receipt Date: 20070312
  Transmission Date: 20070707
  Serious: No
  Sender: FDA-Public Use
  Company Number: DE-BOEHRINGER INGELHEIM GMBH, GERMANY-2006-DE-06861DE

PATIENT
  Sex: Male
  Weight: 83 kg

DRUGS (6)
  1. MICARDIS [Suspect]
     Indication: HYPERTENSION
     Dates: start: 20060901
  2. HYDROCHLOROTHIAZIDE [Suspect]
     Indication: HYPERTENSION
     Dates: start: 20061002
  3. SIMVASTATIN [Concomitant]
     Indication: MYOCARDIAL INFARCTION
     Dates: start: 20070113
  4. SIMVASTATIN [Concomitant]
     Indication: STRESS CARDIOMYOPATHY
  5. WARFARIN SODIUM [Concomitant]
     Indication: MYOCARDIAL INFARCTION
     Dates: start: 20070207
  6. WARFARIN SODIUM [Concomitant]
     Indication: STRESS CARDIOMYOPATHY

REACTIONS (4)
  - ABNORMAL FAECES [None]
  - NASAL DISCOMFORT [None]
  - PAROSMIA [None]
  - RHINALGIA [None]
